FAERS Safety Report 5511318-3 (Version None)
Quarter: 2007Q4

REPORT INFORMATION
  Report Type: 
  Country: None (occurrence: None)
  Receive Date: 20071109
  Receipt Date: 20070822
  Transmission Date: 20080405
  Serious: No
  Sender: FDA-Public Use
  Company Number: A0674704A

PATIENT
  Age: 80 Year
  Sex: Male

DRUGS (6)
  1. ALTABAX [Suspect]
     Indication: RASH
     Dosage: 1APP PER DAY
     Route: 061
     Dates: start: 20070821
  2. CEPHALEXIN [Concomitant]
  3. HEART MEDICATION [Concomitant]
  4. BLOOD THINNER [Concomitant]
  5. ARTHRITIS MEDICATION [Concomitant]
  6. GLUCOPHAGE [Concomitant]

REACTIONS (4)
  - BLISTER [None]
  - IRRITABILITY [None]
  - PRURITUS [None]
  - SKIN DISORDER [None]
